FAERS Safety Report 4945289-5 (Version None)
Quarter: 2006Q1

REPORT INFORMATION
  Report Type: 
  Country: None (occurrence: None)
  Receive Date: 20060119
  Receipt Date: 20041221
  Transmission Date: 20060701
  Serious: No
  Sender: FDA-Public Use
  Company Number: 04P-163-0284285-00

PATIENT
  Age: 52 Year
  Sex: Female
  Weight: 81.6475 kg

DRUGS (4)
  1. MERIDIA [Suspect]
     Indication: WEIGHT DECREASED
     Dosage: 10 MG; 15 MG : 1 IN 1 D
     Dates: start: 20020501, end: 20040101
  2. MERIDIA [Suspect]
     Indication: WEIGHT DECREASED
     Dosage: 10 MG; 15 MG : 1 IN 1 D
     Dates: start: 20040101, end: 20041021
  3. ZOCOR [Concomitant]
  4. ZETIA [Concomitant]

REACTIONS (3)
  - ATRIAL FIBRILLATION [None]
  - DRUG INEFFECTIVE [None]
  - PALPITATIONS [None]
